FAERS Safety Report 10931250 (Version 2)
Quarter: 2015Q1

REPORT INFORMATION
  Report Type: Spontaneous
  Country: JP (occurrence: JP)
  Receive Date: 20150319
  Receipt Date: 20150327
  Transmission Date: 20150721
  Serious: Yes (Life-Threatening, Other)
  Sender: FDA-Public Use
  Company Number: PHHY2015JP005825

PATIENT
  Age: 85 Year
  Sex: Female
  Weight: 31 kg

DRUGS (6)
  1. ULTIBRO INHALATION CAPSULES [Suspect]
     Active Substance: GLYCOPYRRONIUM\INDACATEROL
     Indication: CHRONIC OBSTRUCTIVE PULMONARY DISEASE
     Dosage: 1 DF, QD (GLYCOPYRRONIUM 63 UG/INDACATEROL 143 UG)
     Route: 055
     Dates: start: 20131224, end: 20141212
  2. HOKUNALIN [Concomitant]
     Active Substance: TULOBUTEROL
     Indication: ASTHMA
     Dosage: 2 MG, QD
     Route: 062
     Dates: start: 20131102
  3. LENDORMIN [Concomitant]
     Active Substance: BROTIZOLAM
     Indication: INSOMNIA
     Dosage: 0.25 MG, QD
     Route: 048
     Dates: start: 20140125
  4. EXELON PATCH [Suspect]
     Active Substance: RIVASTIGMINE
     Indication: DEMENTIA ALZHEIMER^S TYPE
     Dosage: 1.9 MG/24 HOURS (4.5 MG RIVASTIGMINE BASE) PATCH 2.5 (CM2)
     Route: 062
     Dates: start: 20141202, end: 20141230
  5. CONIEL [Concomitant]
     Active Substance: BENIDIPINE HYDROCHLORIDE
     Indication: HYPERTENSION
     Dosage: 4 MG, QD
     Route: 048
     Dates: start: 19960111
  6. MARZULENE-S [Concomitant]
     Active Substance: SODIUM GUALENATE
     Indication: GASTRITIS
     Dosage: 0.69 MG, TID
     Route: 048
     Dates: start: 20140703

REACTIONS (10)
  - Chest discomfort [Recovered/Resolved]
  - Ventricular extrasystoles [Recovering/Resolving]
  - Blood pressure increased [Not Recovered/Not Resolved]
  - Supraventricular extrasystoles [Unknown]
  - Dizziness [Recovered/Resolved]
  - Sputum increased [Not Recovered/Not Resolved]
  - Palpitations [Recovered/Resolved]
  - Arrhythmia [Recovered/Resolved]
  - Condition aggravated [Unknown]
  - Cough [Not Recovered/Not Resolved]

NARRATIVE: CASE EVENT DATE: 20141202
